FAERS Safety Report 4615825-7 (Version None)
Quarter: 2005Q1

REPORT INFORMATION
  Report Type: 
  Country: None (occurrence: None)
  Receive Date: 20050321
  Receipt Date: 20050310
  Transmission Date: 20050727
  Serious: Yes (Hospitalization)
  Sender: FDA-Public Use
  Company Number: GXKR2005US00742

PATIENT
  Age: 70 Year
  Sex: Male

DRUGS (2)
  1. METFORMIN (NGX) (METFORMIN) [Suspect]
     Indication: DIABETES MELLITUS
     Dosage: 500 MG, BID
  2. GLIPIZIDE (GLIZIPIDE) [Concomitant]

REACTIONS (6)
  - ANOREXIA [None]
  - ASTHENIA [None]
  - COLONIC POLYP [None]
  - DIVERTICULITIS [None]
  - GASTRITIS [None]
  - WEIGHT DECREASED [None]
